FAERS Safety Report 14067964 (Version 1)
Quarter: 2017Q4

REPORT INFORMATION
  Report Type: Spontaneous
  Country: US (occurrence: US)
  Receive Date: 20171010
  Receipt Date: 20171010
  Transmission Date: 20180321
  Serious: Yes (Other)
  Sender: FDA-Public Use
  Company Number: US-009507513-1710USA000220

PATIENT
  Age: 59 Year
  Sex: Female

DRUGS (1)
  1. TICE BCG [Suspect]
     Active Substance: BACILLUS CALMETTE-GUERIN SUBSTRAIN TICE LIVE ANTIGEN
     Indication: TRANSITIONAL CELL CARCINOMA
     Dosage: UNK
     Route: 043
     Dates: start: 2013, end: 2014

REACTIONS (6)
  - Micturition disorder [Unknown]
  - Uterine enlargement [Unknown]
  - Uterine leiomyoma [Unknown]
  - Nocturia [Unknown]
  - Mixed incontinence [Unknown]
  - Disseminated Bacillus Calmette-Guerin infection [Unknown]

NARRATIVE: CASE EVENT DATE: 20170212
